FAERS Safety Report 8087958-7 (Version None)
Quarter: 2012Q1

REPORT INFORMATION
  Report Type: 
  Country: None (occurrence: None)
  Receive Date: 20120130
  Receipt Date: 20120120
  Transmission Date: 20120608
  Serious: Yes (Other)
  Sender: FDA-Public Use
  Company Number: FR-ASTRAZENECA-2012SE02036

PATIENT
  Age: 26 Year
  Sex: Male
  Weight: 73 kg

DRUGS (7)
  1. CLONAZEPAM [Concomitant]
     Indication: ANXIETY
     Dosage: 6 MG, 3 MG AND THEN 4 MG PER DAY
     Route: 048
     Dates: start: 20111129, end: 20111205
  2. TRIHEXYPHENIDYL HYDROCHLORIDE [Concomitant]
     Indication: CHILLS
     Route: 048
     Dates: start: 20111129
  3. LOXAPINE HCL [Concomitant]
     Indication: PSYCHOTIC DISORDER
     Dosage: 100 MG AND THEN, 150 MG PER DAY
     Route: 048
  4. HALDOL [Concomitant]
     Indication: PSYCHOTIC DISORDER
     Route: 030
     Dates: start: 20110301
  5. QUETIAPINE FUMARATE [Suspect]
     Indication: PSYCHOTIC DISORDER
     Dosage: FORMULATION: TABLET SR
     Route: 048
     Dates: start: 20111130, end: 20111130
  6. QUETIAPINE FUMARATE [Suspect]
     Dosage: FORMULATION: TABLET SR
     Route: 048
     Dates: start: 20111201, end: 20111204
  7. MIANSERINE [Concomitant]
     Indication: DEPRESSION
     Route: 048
     Dates: start: 20111129, end: 20111204

REACTIONS (6)
  - BLOOD CREATINE PHOSPHOKINASE INCREASED [None]
  - TRANSAMINASES INCREASED [None]
  - ASPARTATE AMINOTRANSFERASE INCREASED [None]
  - GAMMA-GLUTAMYLTRANSFERASE INCREASED [None]
  - ALANINE AMINOTRANSFERASE INCREASED [None]
  - BLOOD LACTATE DEHYDROGENASE INCREASED [None]
